FAERS Safety Report 12834096 (Version 1)
Quarter: 2016Q4

REPORT INFORMATION
  Report Type: Spontaneous
  Country: US (occurrence: US)
  Receive Date: 20161010
  Receipt Date: 20161010
  Transmission Date: 20170207
  Serious: No
  Sender: FDA-Public Use
  Company Number: GXBR2016US002163

PATIENT
  Age: 84 Year
  Sex: Female
  Weight: 90.7 kg

DRUGS (1)
  1. NYSTATIN. [Suspect]
     Active Substance: NYSTATIN
     Indication: PRODUCT USED FOR UNKNOWN INDICATION
     Dosage: UNK DF, TID
     Route: 061
     Dates: start: 2012

REACTIONS (1)
  - Pruritus [Not Recovered/Not Resolved]
